FAERS Safety Report 16132668 (Version 5)
Quarter: 2019Q2

REPORT INFORMATION
  Report Type: Report from Study
  Country: FR (occurrence: FR)
  Receive Date: 20190329
  Receipt Date: 20190513
  Transmission Date: 20190711
  Serious: Yes (Hospitalization)
  Sender: FDA-Public Use
  Company Number: FR-EISAI MEDICAL RESEARCH-EC-2019-053830

PATIENT
  Age: 64 Year
  Sex: Male
  Weight: 89 kg

DRUGS (8)
  1. FRAGMINE [Concomitant]
     Active Substance: DALTEPARIN SODIUM
  2. HUMALOG [Concomitant]
     Active Substance: INSULIN LISPRO
     Dates: start: 201601
  3. PEMBROLIZUMAB. [Suspect]
     Active Substance: PEMBROLIZUMAB
     Indication: HEPATOCELLULAR CARCINOMA
     Route: 041
  4. INEXIUM [Concomitant]
     Active Substance: ESOMEPRAZOLE
     Dates: start: 20190215
  5. LANTUS [Concomitant]
     Active Substance: INSULIN GLARGINE
     Dates: start: 201601
  6. LENVATINIB [Suspect]
     Active Substance: LENVATINIB
     Indication: HEPATOCELLULAR CARCINOMA
     Dosage: 12 MG OR 8 MG
     Route: 048
     Dates: start: 20190306, end: 20190314
  7. AVLOCARDYL [Concomitant]
     Active Substance: PROPRANOLOL HYDROCHLORIDE
     Dates: start: 201601
  8. TRIATEC [Concomitant]

REACTIONS (1)
  - Hepatic encephalopathy [Recovered/Resolved]

NARRATIVE: CASE EVENT DATE: 20190314
